FAERS Safety Report 7228976-8 (Version None)
Quarter: 2011Q1

REPORT INFORMATION
  Report Type: 
  Country: None (occurrence: None)
  Receive Date: 20110117
  Receipt Date: 20110107
  Transmission Date: 20110831
  Serious: Yes (Hospitalization)
  Sender: FDA-Public Use
  Company Number: JP-ABBOTT-10P-087-0677125-00

PATIENT
  Age: 69 Year
  Sex: Male

DRUGS (12)
  1. DOCETAXEL [Suspect]
     Indication: PROSTATE CANCER METASTATIC
     Route: 041
     Dates: start: 20081106, end: 20091116
  2. CALCIUM LACTATE [Concomitant]
     Indication: HYPOCALCAEMIA
     Route: 048
  3. MORPHINE [Concomitant]
     Indication: PAIN IN EXTREMITY
     Route: 065
     Dates: start: 20080424
  4. LEUPROLIDE ACETATE [Suspect]
     Indication: PROSTATE CANCER METASTATIC
     Route: 058
     Dates: start: 20051201, end: 20100426
  5. MAGNESIUM OXIDE [Concomitant]
     Indication: CONSTIPATION
     Route: 048
  6. BROTIZOLAM [Concomitant]
     Indication: INSOMNIA
     Route: 048
     Dates: start: 20090130
  7. FENTANYL [Concomitant]
     Indication: CANCER PAIN
     Dosage: PATCH
     Route: 062
     Dates: start: 20080717
  8. CASODEX [Concomitant]
     Indication: PROSTATE CANCER METASTATIC
     Route: 048
     Dates: start: 20051201
  9. ODYNE [Concomitant]
     Indication: PROSTATE CANCER METASTATIC
     Route: 048
  10. ZOMETA [Suspect]
     Indication: METASTASES TO BONE
     Route: 041
     Dates: start: 20081110
  11. LANSOPRAZOLE [Concomitant]
     Indication: GASTRIC ULCER
     Route: 048
     Dates: start: 20090130
  12. DECADRON [Concomitant]
     Indication: PROSTATE CANCER METASTATIC
     Route: 048
     Dates: start: 20100329

REACTIONS (2)
  - PLEURISY [None]
  - LYMPHOCYTE STIMULATION TEST POSITIVE [None]
